FAERS Safety Report 7691943-4 (Version None)
Quarter: 2011Q3

REPORT INFORMATION
  Report Type: 
  Country: None (occurrence: None)
  Receive Date: 20110818
  Receipt Date: 20110816
  Transmission Date: 20111222
  Serious: Yes (Hospitalization)
  Sender: FDA-Public Use
  Company Number: BG-ROCHE-687454

PATIENT
  Sex: Female
  Weight: 56 kg

DRUGS (8)
  1. CARBOPLATIN [Suspect]
     Dosage: DOSE LEVEL: 05 AUC, LAST DOSE PRIOR TO SAE: 19 FEBRUARY 2010. DOSE FORM: VIALS.
     Route: 042
     Dates: start: 20100129
  2. FUROSEMIDE [Concomitant]
     Dates: start: 20100222, end: 20100224
  3. TRASTUZUMAB [Suspect]
     Dosage: MAINTENANCE DOSE,DOSE LEVEL: 06 MG/KG, LAST DOSE PRIOR TO SAE: 19 FEBRUARY 2010, DOSE FORM: VIALS.
     Route: 042
     Dates: start: 20100219
  4. BEVACIZUMAB [Suspect]
     Dosage: DOSE LEVEL: 15 MG/KG, LAST DOSE PRIOR TO SAE: 19 FEBRUARY 2010. DOSAE FORM: VIALS.
     Route: 042
     Dates: start: 20100129
  5. ETHAMSYLATE [Concomitant]
     Dosage: DRUG REPORTED: DECYNON.
     Dates: start: 20100224
  6. DOCETAXEL [Suspect]
     Dosage: DOSE LEVEL: 60 MG/M^2, LAST DOSE PRIOR TO SAE: 19 FEBRUARY 2010, DOSE FORM: VIALS.
     Route: 042
     Dates: start: 20100129
  7. SOLU-MEDROL [Concomitant]
     Dates: start: 20100222
  8. TRASTUZUMAB [Suspect]
     Dosage: LOADING DOSE.
     Route: 042
     Dates: start: 20100129

REACTIONS (1)
  - TUBULOINTERSTITIAL NEPHRITIS [None]
